FAERS Safety Report 9919243 (Version 1)
Quarter: 2014Q1

REPORT INFORMATION
  Report Type: Spontaneous
  Country: CH (occurrence: CH)
  Receive Date: 20140224
  Receipt Date: 20140224
  Transmission Date: 20141002
  Serious: Yes (Hospitalization, Other)
  Sender: FDA-Public Use
  Company Number: CH-JNJFOC-20140213751

PATIENT
  Age: 46 Year
  Sex: Female

DRUGS (3)
  1. SIMPONI [Suspect]
     Indication: RHEUMATOID ARTHRITIS
     Route: 058
     Dates: start: 2013, end: 201401
  2. LEFLUNOMID [Concomitant]
     Indication: RHEUMATOID ARTHRITIS
     Route: 065
  3. CORTISONE [Concomitant]
     Indication: RHEUMATOID ARTHRITIS
     Dosage: AS NECESSARY
     Route: 065

REACTIONS (1)
  - Tuberculosis gastrointestinal [Unknown]
